FAERS Safety Report 7678212-3 (Version None)
Quarter: 2011Q3

REPORT INFORMATION
  Report Type: 
  Country: None (occurrence: None)
  Receive Date: 20110811
  Receipt Date: 20110801
  Transmission Date: 20111222
  Serious: Yes (Hospitalization)
  Sender: FDA-Public Use
  Company Number: US-ELI_LILLY_AND_COMPANY-US201108001041

PATIENT
  Age: 68 Year
  Sex: Male

DRUGS (2)
  1. HUMALOG [Suspect]
     Indication: DIABETES MELLITUS
     Dosage: UNK
  2. NOVOLIN 70/30 [Concomitant]
     Dosage: UNK

REACTIONS (4)
  - ARTERIAL STENOSIS [None]
  - HYPERTENSION [None]
  - HEART RATE INCREASED [None]
  - ATRIAL FIBRILLATION [None]
